FAERS Safety Report 4358653-2 (Version None)
Quarter: 2004Q2

REPORT INFORMATION
  Report Type: 
  Country: None (occurrence: None)
  Receive Date: 20040511
  Receipt Date: 20040428
  Transmission Date: 20050107
  Serious: No
  Sender: FDA-Public Use
  Company Number: 2004UW06987

PATIENT
  Age: 55 Year
  Sex: Female
  Weight: 102.9665 kg

DRUGS (10)
  1. CRESTOR [Suspect]
     Indication: HYPERCHOLESTEROLAEMIA
     Dosage: 10 MG PO; 80 MG PO
     Route: 048
     Dates: start: 20000914, end: 20030826
  2. VIOXX [Concomitant]
  3. REGLAN [Concomitant]
  4. FISH OIL [Concomitant]
  5. NORTRIPTYLINE HCL [Concomitant]
  6. CELEXA [Concomitant]
  7. PROTONIX [Concomitant]
  8. LORTAB [Concomitant]
  9. SKELAXIN [Concomitant]
  10. CRESTOR [Suspect]
     Indication: HYPERCHOLESTEROLAEMIA
     Dosage: 80 MG PO
     Route: 048
     Dates: start: 20000628, end: 20000810

REACTIONS (7)
  - ASPARTATE AMINOTRANSFERASE INCREASED [None]
  - DIZZINESS POSTURAL [None]
  - GAMMA-GLUTAMYLTRANSFERASE INCREASED [None]
  - IRON DEFICIENCY ANAEMIA [None]
  - LIVER FUNCTION TEST ABNORMAL [None]
  - PANCREATIC ENZYMES INCREASED [None]
  - SYNCOPE [None]
